FAERS Safety Report 8431524-8 (Version None)
Quarter: 2012Q2

REPORT INFORMATION
  Report Type: 
  Country: None (occurrence: None)
  Receive Date: 20120607
  Receipt Date: 20120607
  Transmission Date: 20120825
  Serious: Yes (Other)
  Sender: FDA-Public Use
  Company Number: None

PATIENT
  Sex: Female
  Weight: 38.5557 kg

DRUGS (1)
  1. MECLIZINE [Suspect]
     Indication: VERTIGO
     Dosage: 25 MG

REACTIONS (1)
  - HEADACHE [None]
